FAERS Safety Report 5108738-8 (Version None)
Quarter: 2006Q3

REPORT INFORMATION
  Report Type: 
  Country: None (occurrence: None)
  Receive Date: 20060914
  Receipt Date: 20060914
  Transmission Date: 20061208
  Serious: Yes (Hospitalization)
  Sender: FDA-Public Use
  Company Number: None

PATIENT
  Sex: Male
  Weight: 70.3075 kg

DRUGS (4)
  1. VELCADE [Suspect]
     Indication: RECURRENT CANCER
     Dosage: 1.6 MG/M2 DAYS 1 AND 8 /CYCLE  IVP
     Route: 042
     Dates: start: 20060817, end: 20060907
  2. VELCADE [Suspect]
     Indication: SQUAMOUS CELL CARCINOMA
     Dosage: 1.6 MG/M2 DAYS 1 AND 8 /CYCLE  IVP
     Route: 042
     Dates: start: 20060817, end: 20060907
  3. TAXOTERE [Suspect]
     Indication: RECURRENT CANCER
     Dosage: 40 MG /M2 DAYS 1 AND 8/CYCLE IV
     Route: 042
     Dates: start: 20060824, end: 20060907
  4. TAXOTERE [Suspect]
     Indication: SQUAMOUS CELL CARCINOMA
     Dosage: 40 MG /M2 DAYS 1 AND 8/CYCLE IV
     Route: 042
     Dates: start: 20060824, end: 20060907

REACTIONS (4)
  - DIARRHOEA [None]
  - HYPOVOLAEMIA [None]
  - NAUSEA [None]
  - VOMITING [None]
